FAERS Safety Report 25636839 (Version 1)
Quarter: 2025Q3

REPORT INFORMATION
  Report Type: Spontaneous
  Country: EU (occurrence: EU)
  Receive Date: 20250804
  Receipt Date: 20250804
  Transmission Date: 20251021
  Serious: Yes (Other)
  Sender: TEVA
  Company Number: None

PATIENT
  Age: 57 Year
  Sex: Female
  Weight: 70 kg

DRUGS (10)
  1. PACLITAXEL [Suspect]
     Active Substance: PACLITAXEL
     Indication: Breast cancer
     Route: 042
     Dates: start: 20200708, end: 20200916
  2. OMEPRAZOLE [Concomitant]
     Active Substance: OMEPRAZOLE
     Indication: Product used for unknown indication
  3. ZOLPIC [Concomitant]
     Indication: Product used for unknown indication
  4. Zomikos [Concomitant]
     Indication: Product used for unknown indication
     Dates: start: 20200228
  5. Zomikos [Concomitant]
     Indication: Product used for unknown indication
     Dates: start: 20201007
  6. Zomikos [Concomitant]
     Indication: Product used for unknown indication
     Dates: start: 20191206
  7. Zomikos [Concomitant]
     Indication: Product used for unknown indication
     Dates: start: 20200715
  8. CLEMASTINE [Concomitant]
     Active Substance: CLEMASTINE
     Indication: Breast cancer
     Route: 042
     Dates: start: 20200708
  9. DEXAMETHASONE [Concomitant]
     Active Substance: DEXAMETHASONE
     Indication: Breast cancer
     Route: 042
     Dates: start: 20200117
  10. ONDANSETRON [Concomitant]
     Active Substance: ONDANSETRON
     Indication: Breast cancer
     Route: 042
     Dates: start: 20200117

REACTIONS (4)
  - Hypoaesthesia [Recovered/Resolved]
  - Oedema peripheral [Recovered/Resolved]
  - Gait disturbance [Recovered/Resolved]
  - Neuropathy peripheral [Recovered/Resolved]

NARRATIVE: CASE EVENT DATE: 20200916
